FAERS Safety Report 23579076 (Version 2)
Quarter: 2024Q1

REPORT INFORMATION
  Report Type: Spontaneous
  Country: GB (occurrence: GB)
  Receive Date: 20240229
  Receipt Date: 20240307
  Transmission Date: 20240409
  Serious: Yes (Life-Threatening, Other)
  Sender: FDA-Public Use
  Company Number: None

PATIENT
  Age: 76 Year
  Sex: Male
  Weight: 68 kg

DRUGS (5)
  1. EZETIMIBE [Suspect]
     Active Substance: EZETIMIBE
     Indication: Hepatic steatosis
     Dosage: 1 DOSAGE FORM, QD (1 DAY)
     Route: 065
     Dates: start: 20230724
  2. ASPIRIN [Concomitant]
     Active Substance: ASPIRIN
     Indication: Product used for unknown indication
     Dosage: 75 MILLIGRAM, QD (1 DAY)
     Route: 065
     Dates: start: 20060301
  3. FINASTERIDE [Concomitant]
     Active Substance: FINASTERIDE
     Indication: Product used for unknown indication
     Dosage: 5 MILLIGRAM, QD (1 DAY)
     Route: 065
     Dates: start: 20080201
  4. OMEPRAZOLE [Concomitant]
     Active Substance: OMEPRAZOLE
     Indication: Product used for unknown indication
     Dosage: 20 MILLIGRAM, QD (1 DAY)
     Route: 065
     Dates: start: 20220201
  5. TAMSULOSIN [Concomitant]
     Active Substance: TAMSULOSIN
     Indication: Product used for unknown indication
     Dosage: 400 MICROGRAM, QD (1 DAY)
     Route: 065
     Dates: start: 20080201

REACTIONS (2)
  - Swelling face [Recovered/Resolved]
  - Musculoskeletal chest pain [Recovered/Resolved]
